FAERS Safety Report 4821299-3 (Version None)
Quarter: 2005Q4

REPORT INFORMATION
  Report Type: 
  Country: None (occurrence: None)
  Receive Date: 20051107
  Receipt Date: 20050712
  Transmission Date: 20060501
  Serious: No
  Sender: FDA-Public Use
  Company Number: US-GLAXOSMITHKLINE-A0565934A

PATIENT
  Sex: Male

DRUGS (5)
  1. AVANDAMET [Suspect]
     Dosage: 2 PER DAY
     Route: 048
     Dates: start: 20040101
  2. ZIAC [Concomitant]
  3. SYNTHROID [Concomitant]
  4. ALTACE [Concomitant]
  5. AMBRIL [Concomitant]

REACTIONS (1)
  - WEIGHT DECREASED [None]
